FAERS Safety Report 5466323-2 (Version None)
Quarter: 2007Q3

REPORT INFORMATION
  Report Type: 
  Country: None (occurrence: None)
  Receive Date: 20070920
  Receipt Date: 20070910
  Transmission Date: 20080115
  Serious: Yes (Death, Hospitalization)
  Sender: FDA-Public Use
  Company Number: 2007001642

PATIENT
  Age: 66 Year
  Sex: Female
  Weight: 76 kg

DRUGS (3)
  1. TARCEVA [Suspect]
     Indication: NON-SMALL CELL LUNG CANCER
     Dosage: 150 MG (QD), ORAL
     Route: 048
     Dates: start: 20070710, end: 20070825
  2. PACLITAXEL [Suspect]
     Dosage: 200 MG/M2, INTRAVENOUS
     Route: 042
     Dates: start: 20070710, end: 20070820
  3. CARBOPLATIN [Suspect]
     Dosage: AUC 6, INTRAVENOUS
     Route: 042
     Dates: start: 20070710, end: 20070820

REACTIONS (13)
  - ANOREXIA [None]
  - BLOOD ALBUMIN ABNORMAL [None]
  - DEEP VEIN THROMBOSIS [None]
  - DEHYDRATION [None]
  - FATIGUE [None]
  - HYPERGLYCAEMIA [None]
  - HYPOCALCAEMIA [None]
  - HYPONATRAEMIA [None]
  - LYMPHOPENIA [None]
  - NAUSEA [None]
  - RESPIRATORY ARREST [None]
  - SUDDEN DEATH [None]
  - VOMITING [None]
